FAERS Safety Report 16779705 (Version 1)
Quarter: 2019Q3

REPORT INFORMATION
  Report Type: Report from Study
  Country: None (occurrence: BR)
  Receive Date: 20190906
  Receipt Date: 20190906
  Transmission Date: 20191005
  Serious: Yes (Other)
  Sender: FDA-Public Use
  Company Number: BR-ABBVIE-19K-020-2909475-00

PATIENT
  Sex: Female
  Weight: 77 kg

DRUGS (4)
  1. HUMIRA [Suspect]
     Active Substance: ADALIMUMAB
     Dosage: LOADING DOSE - WEEK 02
     Route: 058
     Dates: start: 20120315, end: 20120315
  2. HUMIRA [Suspect]
     Active Substance: ADALIMUMAB
     Route: 058
     Dates: end: 20190802
  3. HUMIRA [Suspect]
     Active Substance: ADALIMUMAB
     Route: 058
     Dates: start: 201908
  4. HUMIRA [Suspect]
     Active Substance: ADALIMUMAB
     Indication: CROHN^S DISEASE
     Dosage: LOADING DOSE - WEEK 0
     Route: 058
     Dates: start: 20120301, end: 20120301

REACTIONS (8)
  - Intervertebral disc protrusion [Not Recovered/Not Resolved]
  - Epidural injection [Unknown]
  - Pain in extremity [Recovered/Resolved]
  - Sacroiliitis [Unknown]
  - Thyroid mass [Unknown]
  - Swelling [Recovering/Resolving]
  - Pain in extremity [Not Recovered/Not Resolved]
  - Back pain [Recovered/Resolved]

NARRATIVE: CASE EVENT DATE: 2016
